FAERS Safety Report 8349229-0 (Version None)
Quarter: 2012Q2

REPORT INFORMATION
  Report Type: 
  Country: None (occurrence: None)
  Receive Date: 20120508
  Receipt Date: 20120508
  Transmission Date: 20120825
  Serious: Yes (Other)
  Sender: FDA-Public Use
  Company Number: None

PATIENT
  Age: 53 Year
  Sex: Male
  Weight: 124.7392 kg

DRUGS (1)
  1. LEXAPRO [Suspect]
     Indication: DEPRESSION
     Dosage: 20MG 1/DAY ORAL
     Route: 048
     Dates: start: 20110101, end: 20120401

REACTIONS (3)
  - DRUG WITHDRAWAL SYNDROME [None]
  - INFLUENZA LIKE ILLNESS [None]
  - PARAESTHESIA [None]
